FAERS Safety Report 23806698 (Version 1)
Quarter: 2024Q2

REPORT INFORMATION
  Report Type: Report from Study
  Country: FR (occurrence: FR)
  Receive Date: 20240502
  Receipt Date: 20240502
  Transmission Date: 20240716
  Serious: Yes (Hospitalization, Other)
  Sender: FDA-Public Use
  Company Number: FR-TAKEDA-2024TUS041874

PATIENT
  Age: 7 Year
  Sex: Male

DRUGS (8)
  1. TEDUGLUTIDE [Suspect]
     Active Substance: TEDUGLUTIDE
     Indication: Short-bowel syndrome
     Dosage: 1 MILLIGRAM, QD
     Route: 042
     Dates: start: 20220715
  2. TEDUGLUTIDE [Suspect]
     Active Substance: TEDUGLUTIDE
     Indication: Short-bowel syndrome
     Dosage: 1 MILLIGRAM, QD
     Route: 042
     Dates: start: 20220715
  3. TEDUGLUTIDE [Suspect]
     Active Substance: TEDUGLUTIDE
     Indication: Short-bowel syndrome
     Dosage: 1 MILLIGRAM, QD
     Route: 042
     Dates: start: 20220715
  4. TEDUGLUTIDE [Suspect]
     Active Substance: TEDUGLUTIDE
     Indication: Short-bowel syndrome
     Dosage: 1 MILLIGRAM, QD
     Route: 042
     Dates: start: 20220715
  5. CEFAZOLIN SODIUM [Concomitant]
     Active Substance: CEFAZOLIN SODIUM
     Indication: Osteitis
     Dosage: 150 MILLIGRAM, QD
     Route: 042
     Dates: start: 20231126, end: 20231221
  6. CLOXACILLIN [Concomitant]
     Active Substance: CLOXACILLIN
     Indication: Osteitis
     Dosage: 1400 MILLIGRAM
     Route: 048
     Dates: start: 20231020, end: 20231025
  7. FORLAXLIB [Concomitant]
     Dosage: 4 GRAM
     Route: 048
     Dates: start: 20231026
  8. NUBAIN [Concomitant]
     Active Substance: NALBUPHINE HYDROCHLORIDE
     Indication: Abdominal pain
     Dosage: 5 MILLIGRAM
     Route: 048
     Dates: start: 20231026

REACTIONS (2)
  - Osteomyelitis [Recovered/Resolved]
  - Gastric ileus [Recovered/Resolved]

NARRATIVE: CASE EVENT DATE: 20231020
